FAERS Safety Report 9582924 (Version 1)
Quarter: 2013Q4

REPORT INFORMATION
  Report Type: Spontaneous
  Country: US (occurrence: US)
  Receive Date: 20131002
  Receipt Date: 20131002
  Transmission Date: 20140711
  Serious: No
  Sender: FDA-Public Use
  Company Number: US-AMGEN-USASP2013044041

PATIENT
  Age: 59 Year
  Sex: Female
  Weight: 86.17 kg

DRUGS (6)
  1. ENBREL [Suspect]
     Indication: PRODUCT USED FOR UNKNOWN INDICATION
     Dosage: 50 MG, 2 TIMES/WK
     Route: 058
  2. AMLODIPINE [Concomitant]
     Dosage: 5 MG, UNK
  3. HYDROCHLOROTH [Concomitant]
     Dosage: 25 MG, UNK
  4. DIOVAN [Concomitant]
     Dosage: 40 MG, UNK
  5. FOLIC ACID [Concomitant]
     Dosage: UNK
  6. METHOTREXATE [Concomitant]
     Dosage: 2.5 MG, UNK

REACTIONS (1)
  - Therapeutic response decreased [Unknown]
